FAERS Safety Report 16112735 (Version 1)
Quarter: 2019Q1

REPORT INFORMATION
  Report Type: Spontaneous
  Country: JP (occurrence: JP)
  Receive Date: 20190325
  Receipt Date: 20190325
  Transmission Date: 20190418
  Serious: Yes (Hospitalization)
  Sender: FDA-Public Use
  Company Number: JP-MYLANLABS-2019M1024577

PATIENT
  Age: 6 Decade
  Sex: Male

DRUGS (1)
  1. EPIRUBICIN [Suspect]
     Active Substance: EPIRUBICIN
     Indication: HEPATOCELLULAR CARCINOMA
     Dosage: EPIRUBICIN-LOADED DRUG-ELUTING BEADS TRANSARTERIAL CHEMOEMBOLIZATION (DEB-TACE).
     Route: 050

REACTIONS (3)
  - Lymph node tuberculosis [Recovering/Resolving]
  - Tuberculosis [Recovering/Resolving]
  - Abdominal lymphadenopathy [Recovering/Resolving]

NARRATIVE: CASE EVENT DATE: 201410
